FAERS Safety Report 24296055 (Version 1)
Quarter: 2024Q3

REPORT INFORMATION
  Report Type: Spontaneous
  Country: US (occurrence: US)
  Receive Date: 20240909
  Receipt Date: 20240909
  Transmission Date: 20241017
  Serious: Yes (Hospitalization)
  Sender: OXFORD PHARMACEUTICALS
  Company Number: US-Oxford Pharmaceuticals, LLC-2161372

PATIENT
  Age: 24 Year
  Sex: Male

DRUGS (3)
  1. BENZTROPINE MESYLATE [Suspect]
     Active Substance: BENZTROPINE MESYLATE
     Indication: Persistent depressive disorder
  2. ARIPIPRAZOLE [Suspect]
     Active Substance: ARIPIPRAZOLE
  3. DULOXETINE [Suspect]
     Active Substance: DULOXETINE

REACTIONS (1)
  - Drug ineffective [Unknown]
